FAERS Safety Report 15647936 (Version 1)
Quarter: 2018Q4

REPORT INFORMATION
  Report Type: Report from Study
  Country: US (occurrence: US)
  Receive Date: 20181122
  Receipt Date: 20181122
  Transmission Date: 20190205
  Serious: Yes (Hospitalization, Other)
  Sender: FDA-Public Use
  Company Number: US-GILEAD-2018-0375928

PATIENT
  Age: 69 Year
  Sex: Male

DRUGS (15)
  1. FUROSEMIDE. [Concomitant]
     Active Substance: FUROSEMIDE
  2. WARFARIN [Concomitant]
     Active Substance: WARFARIN
  3. VITAMIN C [Concomitant]
     Active Substance: ASCORBIC ACID
  4. OMEPRAZOLE. [Concomitant]
     Active Substance: OMEPRAZOLE
  5. VITAMIN B12 [Concomitant]
     Active Substance: CYANOCOBALAMIN
  6. GABAPENTIN. [Concomitant]
     Active Substance: GABAPENTIN
  7. AMBRISENTAN [Suspect]
     Active Substance: AMBRISENTAN
     Indication: PULMONARY ARTERIAL HYPERTENSION
     Dosage: 5 MG, QD
     Route: 065
     Dates: start: 20180619
  8. VITAMIN D [Concomitant]
     Active Substance: CHOLECALCIFEROL
  9. AMLODIPINE [Concomitant]
     Active Substance: AMLODIPINE BESYLATE
  10. LUMIGAN [Concomitant]
     Active Substance: BIMATOPROST
  11. NIACIN. [Concomitant]
     Active Substance: NIACIN
  12. SIMVASTATIN. [Concomitant]
     Active Substance: SIMVASTATIN
  13. ASPIRIN. [Concomitant]
     Active Substance: ASPIRIN
  14. IRON [Concomitant]
     Active Substance: IRON
  15. LEVOFLOXACIN. [Concomitant]
     Active Substance: LEVOFLOXACIN

REACTIONS (1)
  - Cardiac pacemaker insertion [Not Recovered/Not Resolved]

NARRATIVE: CASE EVENT DATE: 201811
